FAERS Safety Report 16032143 (Version 2)
Quarter: 2019Q1

REPORT INFORMATION
  Report Type: Report from Study
  Country: None (occurrence: US)
  Receive Date: 20190304
  Receipt Date: 20190304
  Transmission Date: 20190418
  Serious: Yes (Hospitalization, Other)
  Sender: FDA-Public Use
  Company Number: US-BAUSCH-BL-2019-006939

PATIENT
  Age: 43 Year
  Sex: Male

DRUGS (1)
  1. BUPROPION. [Suspect]
     Active Substance: BUPROPION
     Indication: PRODUCT USED FOR UNKNOWN INDICATION
     Dosage: DOUBLE-DOSE INGESTION
     Route: 048

REACTIONS (2)
  - Extra dose administered [Unknown]
  - Seizure [Recovered/Resolved]
